FAERS Safety Report 25881203 (Version 1)
Quarter: 2025Q4

REPORT INFORMATION
  Report Type: Report from Study
  Country: US (occurrence: US)
  Receive Date: 20251004
  Receipt Date: 20251004
  Transmission Date: 20260118
  Serious: Yes (Other)
  Sender: NOVARTIS
  Company Number: US-002147023-NVSC2025US153697

PATIENT
  Sex: Female

DRUGS (2)
  1. KESIMPTA [Suspect]
     Active Substance: OFATUMUMAB
     Indication: Multiple sclerosis
     Dosage: 20 MG, OTHER (ONCE A WEEK FOR 3 WEEKS, SKIP A WEEK, THEN START MONTHLY ON THE FOLLOWING WEEK)
     Route: 058
     Dates: start: 20250725
  2. KESIMPTA [Suspect]
     Active Substance: OFATUMUMAB
     Dosage: UNK (LAST MAINTENANCE DOSE ON 9/19)
     Route: 065

REACTIONS (4)
  - Upper respiratory tract infection [Recovered/Resolved]
  - Immunosuppression [Unknown]
  - Illness [Unknown]
  - Gastroenteritis [Unknown]
